FAERS Safety Report 6421738-0 (Version None)
Quarter: 2009Q4

REPORT INFORMATION
  Report Type: 
  Country: None (occurrence: None)
  Receive Date: 20091030
  Receipt Date: 20091020
  Transmission Date: 20100525
  Serious: Yes (Hospitalization, Other)
  Sender: FDA-Public Use
  Company Number: US-ELI_LILLY_AND_COMPANY-US200910005880

PATIENT
  Age: 77 Year
  Sex: Female

DRUGS (1)
  1. FORTEO [Suspect]
     Dosage: 20 MG, DAILY (1/D)
     Route: 058
     Dates: end: 20090914

REACTIONS (2)
  - GASTROINTESTINAL HAEMORRHAGE [None]
  - PRURITUS GENERALISED [None]
